FAERS Safety Report 8836781 (Version 1)
Quarter: 2012Q4

REPORT INFORMATION
  Report Type: 
  Country: US (occurrence: US)
  Receive Date: 20121012
  Receipt Date: 20121012
  Transmission Date: 20130627
  Serious: No
  Sender: FDA-Public Use
  Company Number: US-B.I. PHARMACEUTICALS,INC./RIDGEFIELD-2012-BP-23809BP

PATIENT
  Age: 63 Year
  Sex: Female
  Weight: 64 kg

DRUGS (15)
  1. IPRATROPIUM BROMIDE [Suspect]
     Indication: CHRONIC OBSTRUCTIVE PULMONARY DISEASE
     Dosage: 17 mcg
     Route: 055
     Dates: start: 2005
  2. FIORINAL  WITH CODEINE [Concomitant]
     Indication: MIGRAINE
     Route: 048
  3. THEOPHYLLINE [Concomitant]
     Indication: DYSPNOEA
     Dosage: 800 mg
     Route: 048
  4. TRAMADOL [Concomitant]
     Route: 048
  5. LISINOPRIL [Concomitant]
     Indication: CARDIAC DISORDER
     Dosage: 10 mg
     Route: 048
  6. XANAX [Concomitant]
     Indication: PANIC ATTACK
     Route: 048
  7. MECLIZINE [Concomitant]
     Route: 048
  8. FLEXERIL [Concomitant]
     Indication: FIBROMYALGIA
     Route: 048
  9. CARVEDILOL [Concomitant]
     Indication: CARDIAC DISORDER
     Dosage: 6.5 mg
     Route: 048
  10. CRESTOR [Concomitant]
     Indication: BLOOD CHOLESTEROL INCREASED
     Dosage: 10 mg
     Route: 048
  11. RANITIDINE [Concomitant]
     Indication: HIATUS HERNIA
     Dosage: 150 mg
     Route: 048
  12. NITROGLYCERINE SPRAY [Concomitant]
     Indication: CHEST PAIN
     Route: 055
  13. CELEBREX [Concomitant]
     Indication: ARTHRITIS
     Dosage: 200 mg
     Route: 048
  14. PROMETHAZINE [Concomitant]
     Indication: NAUSEA
     Route: 048
  15. PROMETHAZINE [Concomitant]
     Indication: VOMITING

REACTIONS (2)
  - Pain [Not Recovered/Not Resolved]
  - Product quality issue [Not Recovered/Not Resolved]
